FAERS Safety Report 8992666 (Version 1)
Quarter: 2013Q1

REPORT INFORMATION
  Report Type: Report from Study
  Country: DE (occurrence: DE)
  Receive Date: 20130101
  Receipt Date: 20130101
  Transmission Date: 20140127
  Serious: Yes (Hospitalization)
  Sender: FDA-Public Use
  Company Number: DE-TEVA-377027GER

PATIENT
  Sex: Female

DRUGS (11)
  1. DOXORUBICIN [Suspect]
     Indication: B-CELL LYMPHOMA
     Dosage: 93 MILLIGRAM DAILY;
     Route: 042
  2. PREDNISOLONE [Suspect]
     Indication: B-CELL LYMPHOMA
     Dosage: 100 MILLIGRAM DAILY;
     Route: 048
     Dates: start: 20121013, end: 20121017
  3. PREDNISOLONE [Suspect]
     Dosage: 100 MILLIGRAM DAILY;
     Route: 048
     Dates: start: 20121102, end: 20121102
  4. CALCIUM FOLINATE [Suspect]
     Indication: B-CELL LYMPHOMA
     Route: 058
     Dates: start: 20120715, end: 20120716
  5. CALCIUM FOLINATE [Suspect]
     Dosage: 45 MILLIGRAM DAILY;
     Route: 058
     Dates: start: 20120715, end: 20120716
  6. METHOTREXATE SODIUM [Suspect]
     Indication: B-CELL LYMPHOMA
     Dosage: 2715 MILLIGRAM DAILY;
     Route: 042
     Dates: start: 20120714, end: 20120714
  7. METHOTREXATE SODIUM [Suspect]
     Dosage: 45 MILLIGRAM DAILY;
     Route: 058
     Dates: start: 20120715, end: 20120716
  8. RITUXIMAB [Suspect]
     Indication: B-CELL LYMPHOMA
     Dosage: 679 MILLIGRAM DAILY;
     Route: 042
     Dates: start: 20121102, end: 20121102
  9. CYCLOPHOSPHAMIDE [Suspect]
     Indication: B-CELL LYMPHOMA
     Dosage: 770.625 MILLIGRAM DAILY;
     Route: 042
     Dates: start: 20121013, end: 20121013
  10. PEGFILGRASTIM [Suspect]
     Indication: B-CELL LYMPHOMA
     Route: 058
     Dates: start: 20121016, end: 20121016
  11. ENOXAPARIN SODIUM [Concomitant]
     Indication: THROMBOSIS PROPHYLAXIS
     Route: 058

REACTIONS (4)
  - Atrial fibrillation [Not Recovered/Not Resolved]
  - C-reactive protein increased [None]
  - Polyneuropathy [None]
  - Body temperature increased [None]
